FAERS Safety Report 11829881 (Version 1)
Quarter: 2015Q4

REPORT INFORMATION
  Report Type: Spontaneous
  Country: IT (occurrence: IT)
  Receive Date: 20151212
  Receipt Date: 20151212
  Transmission Date: 20160305
  Serious: Yes (Other)
  Sender: FDA-Public Use
  Company Number: IT-BIOGEN-2015BI142277

PATIENT
  Age: 46 Year
  Sex: Male

DRUGS (2)
  1. 4-AMINOPYRIDINE [Concomitant]
     Active Substance: DALFAMPRIDINE
     Route: 065
     Dates: start: 20150601
  2. TYSABRI [Suspect]
     Active Substance: NATALIZUMAB
     Indication: MULTIPLE SCLEROSIS
     Route: 042
     Dates: start: 20130708, end: 20150817

REACTIONS (1)
  - Myxoid liposarcoma [Unknown]

NARRATIVE: CASE EVENT DATE: 20150915
